FAERS Safety Report 7378329-7 (Version None)
Quarter: 2011Q1

REPORT INFORMATION
  Report Type: 
  Country: None (occurrence: None)
  Receive Date: 20110323
  Receipt Date: 20110323
  Transmission Date: 20110831
  Serious: No
  Sender: FDA-Public Use
  Company Number: None

PATIENT
  Age: 66 Year
  Sex: Male

DRUGS (1)
  1. ISONIAZID [Suspect]
     Dates: start: 20080927, end: 20081217

REACTIONS (16)
  - BLOOD ALBUMIN DECREASED [None]
  - ASPARTATE AMINOTRANSFERASE INCREASED [None]
  - HEPATIC FIBROSIS [None]
  - BRONCHIAL HYPERREACTIVITY [None]
  - FATIGUE [None]
  - PROTEIN TOTAL DECREASED [None]
  - BLOOD ALKALINE PHOSPHATASE INCREASED [None]
  - LIVER DISORDER [None]
  - JAUNDICE [None]
  - MIGRAINE [None]
  - BLOOD BILIRUBIN INCREASED [None]
  - ALANINE AMINOTRANSFERASE INCREASED [None]
  - ENCEPHALOPATHY [None]
  - HYPERTENSION [None]
  - HYPERCHOLESTEROLAEMIA [None]
  - HELICOBACTER GASTRITIS [None]
